FAERS Safety Report 6785847-9 (Version None)
Quarter: 2010Q2

REPORT INFORMATION
  Report Type: 
  Country: None (occurrence: None)
  Receive Date: 20100623
  Receipt Date: 20100617
  Transmission Date: 20101027
  Serious: Yes (Other)
  Sender: FDA-Public Use
  Company Number: NL-PFIZER INC-2010068857

PATIENT
  Age: 23 Year
  Sex: Female

DRUGS (1)
  1. DEPO-PROVERA [Suspect]
     Indication: CONTRACEPTION
     Dosage: 150 MG EVERY 10 WEEKS
     Route: 030
     Dates: start: 20060629

REACTIONS (1)
  - UTERINE HAEMORRHAGE [None]
